FAERS Safety Report 20688182 (Version 1)
Quarter: 2022Q2

REPORT INFORMATION
  Report Type: Spontaneous
  Country: US (occurrence: US)
  Receive Date: 20220408
  Receipt Date: 20220408
  Transmission Date: 20220720
  Serious: No
  Sender: FDA-Public Use
  Company Number: ENDG22-01163

PATIENT
  Sex: Female

DRUGS (2)
  1. HYDROXYUREA [Suspect]
     Active Substance: HYDROXYUREA
     Indication: Platelet count increased
     Dosage: UNKNOWN, UNKNOWN (SHORT COURSE)
     Route: 048
     Dates: start: 202107
  2. HYDROXYUREA [Suspect]
     Active Substance: HYDROXYUREA
     Dosage: UNK UNKNOWN, UNKNOWN (FOUR WEEK COURE)
     Route: 048
     Dates: start: 2022

REACTIONS (2)
  - Joint stiffness [Not Recovered/Not Resolved]
  - Off label use [Unknown]

NARRATIVE: CASE EVENT DATE: 20210101
